FAERS Safety Report 7785421-1 (Version None)
Quarter: 2011Q3

REPORT INFORMATION
  Report Type: 
  Country: None (occurrence: None)
  Receive Date: 20110929
  Receipt Date: 20110916
  Transmission Date: 20111222
  Serious: Yes (Disabling)
  Sender: FDA-Public Use
  Company Number: DK-RANBAXY-2011RR-48502

PATIENT
  Sex: Female
  Weight: 65 kg

DRUGS (3)
  1. GABAPENTIN [Suspect]
     Dosage: 900 MG, UNK
     Route: 048
  2. GABAPENTIN [Suspect]
     Indication: NEURALGIA
     Dosage: 2X300 MG
     Route: 048
     Dates: start: 20110406, end: 20110518
  3. ACETAMINOPHEN [Concomitant]
     Indication: PAIN
     Route: 065

REACTIONS (4)
  - CRYING [None]
  - MAJOR DEPRESSION [None]
  - DEPRESSED MOOD [None]
  - LETHARGY [None]
